FAERS Safety Report 16987984 (Version 2)
Quarter: 2019Q4

REPORT INFORMATION
  Report Type: Report from Study
  Country: US (occurrence: US)
  Receive Date: 20191104
  Receipt Date: 20191107
  Transmission Date: 20200122
  Serious: Yes (Life-Threatening, Other)
  Sender: FDA-Public Use
  Company Number: US-HORIZON-KRY-0957-2019

PATIENT
  Age: 70 Year
  Sex: Male
  Weight: 84.8 kg

DRUGS (5)
  1. SOLU-MEDROL [Suspect]
     Active Substance: METHYLPREDNISOLONE SODIUM SUCCINATE
     Indication: PREMEDICATION
     Route: 042
  2. ARAVA [Concomitant]
     Active Substance: LEFLUNOMIDE
  3. FEXOFENADINE [Concomitant]
     Active Substance: FEXOFENADINE HYDROCHLORIDE
     Indication: PREMEDICATION
     Dosage: 60MG NIGHT BEFORE AND MORNING OF INFUSION
  4. COLCHICINE. [Concomitant]
     Active Substance: COLCHICINE
  5. KRYSTEXXA [Suspect]
     Active Substance: PEGLOTICASE
     Indication: GOUT
     Dates: start: 20180813, end: 20190204

REACTIONS (9)
  - Inappropriate schedule of product administration [Unknown]
  - Loss of consciousness [Unknown]
  - Hyperhidrosis [Unknown]
  - Muscle rigidity [Unknown]
  - Dizziness [Unknown]
  - Therapeutic response decreased [Unknown]
  - Unresponsive to stimuli [Unknown]
  - Dizziness [Unknown]
  - Urinary incontinence [Unknown]

NARRATIVE: CASE EVENT DATE: 20190114
